FAERS Safety Report 5715334-8 (Version None)
Quarter: 2008Q2

REPORT INFORMATION
  Report Type: 
  Country: None (occurrence: None)
  Receive Date: 20080423
  Receipt Date: 20080414
  Transmission Date: 20081010
  Serious: Yes (Hospitalization, Disabling)
  Sender: FDA-Public Use
  Company Number: US-MERCK-0705USA05331

PATIENT
  Age: 39 Year
  Sex: Female

DRUGS (1)
  1. FOSAMAX [Suspect]
     Indication: OSTEOPOROSIS
     Route: 048
     Dates: start: 20011101, end: 20060519

REACTIONS (12)
  - ANGIOPATHY [None]
  - ANXIETY [None]
  - BLINDNESS [None]
  - BLOOD CHOLESTEROL INCREASED [None]
  - CARDIOVASCULAR DISORDER [None]
  - CHRONIC OBSTRUCTIVE PULMONARY DISEASE [None]
  - DEPRESSION [None]
  - HYPERTENSION [None]
  - RESORPTION BONE INCREASED [None]
  - RHEUMATOID ARTHRITIS [None]
  - TOOTH LOSS [None]
  - TRISMUS [None]
